FAERS Safety Report 18996562 (Version 1)
Quarter: 2021Q1

REPORT INFORMATION
  Report Type: Spontaneous
  Country: US (occurrence: US)
  Receive Date: 20210311
  Receipt Date: 20210311
  Transmission Date: 20210420
  Serious: Yes (Other)
  Sender: FDA-Public Use
  Company Number: US-AUROBINDO-AUR-APL-2019-050364

PATIENT
  Sex: Male
  Weight: 77 kg

DRUGS (9)
  1. INDIUM (111IN) OXINE [Suspect]
     Active Substance: INDIUM IN-111 OXYQUINOLINE
     Indication: NEOPLASM MALIGNANT
     Dosage: 1 DOSAGE FORM, ONCE A DAY
     Route: 042
     Dates: start: 20060125, end: 20060125
  2. RITUXIMAB. [Concomitant]
     Active Substance: RITUXIMAB
     Indication: LYMPHOMA
     Dosage: 250 MILLIGRAM/SQ. METER
     Route: 042
     Dates: start: 20060125, end: 20060125
  3. ZEVALIN [Suspect]
     Active Substance: IBRITUMOMAB TIUXETAN
     Dosage: 1 DOSAGE FORM, ONCE A DAY
     Route: 042
     Dates: start: 20060201, end: 20060201
  4. RITUXIMAB. [Suspect]
     Active Substance: RITUXIMAB
     Dosage: 250 MG/M2, ONCE A DAY
     Route: 042
     Dates: start: 20060201, end: 20060201
  5. YTTRIUM (90 Y) [Suspect]
     Active Substance: YTTRIUM CHLORIDE Y-90
     Indication: NEOPLASM MALIGNANT
     Dosage: 1 DOSAGE FORM, ONCE A DAY
     Route: 042
     Dates: start: 20060201, end: 20060201
  6. RITUXIMAB. [Suspect]
     Active Substance: RITUXIMAB
     Indication: NEOPLASM MALIGNANT
     Dosage: 250 MG/M2, ONCE A DAY
     Route: 042
     Dates: start: 20060125, end: 20060125
  7. RITUXIMAB. [Concomitant]
     Active Substance: RITUXIMAB
     Dosage: 250 MILLIGRAM/SQ. METER
     Route: 042
     Dates: start: 20060201, end: 20060201
  8. ZEVALIN [Suspect]
     Active Substance: IBRITUMOMAB TIUXETAN
     Indication: NEOPLASM MALIGNANT
     Dosage: UNK
     Route: 042
     Dates: start: 20060123, end: 20060123
  9. ZEVALIN [Suspect]
     Active Substance: IBRITUMOMAB TIUXETAN
     Dosage: 1 DOSAGE FORM, ONCE A DAY
     Route: 042
     Dates: start: 20060125, end: 20060125

REACTIONS (13)
  - Dry throat [Unknown]
  - Gait disturbance [Unknown]
  - Hypotonia [Unknown]
  - Dyspnoea [Unknown]
  - Tremor [Unknown]
  - Bradycardia [Unknown]
  - Chest discomfort [Unknown]
  - Adverse drug reaction [Recovered/Resolved]
  - Hypotension [Unknown]
  - Throat tightness [Unknown]
  - Urinary incontinence [Unknown]
  - Dizziness [Unknown]
  - Back pain [Unknown]

NARRATIVE: CASE EVENT DATE: 20060201
